FAERS Safety Report 4746477-3 (Version None)
Quarter: 2005Q3

REPORT INFORMATION
  Report Type: 
  Country: None (occurrence: None)
  Receive Date: 20050815
  Receipt Date: 20050729
  Transmission Date: 20060218
  Serious: Yes (Other)
  Sender: FDA-Public Use
  Company Number: EWC050443674

PATIENT
  Age: 62 Year
  Sex: Male
  Weight: 93 kg

DRUGS (7)
  1. PEMETREXED [Suspect]
     Indication: MESOTHELIOMA MALIGNANT
     Dosage: 500 MG/M2/1 OTHER
     Dates: start: 20050411, end: 20050411
  2. CISPLATIN [Suspect]
     Indication: MESOTHELIOMA MALIGNANT
     Dosage: 75 MG/M2/1 OTHER
     Dates: start: 20050411, end: 20050411
  3. FOLIC ACID [Concomitant]
  4. VITAMIN B-12 [Concomitant]
  5. DEXAMETHASONE [Concomitant]
  6. SERETIDE [Concomitant]
  7. RABEPRAZOLE SODIUM [Concomitant]

REACTIONS (6)
  - EYE PRURITUS [None]
  - HYPERSENSITIVITY [None]
  - LACRIMATION INCREASED [None]
  - MOUTH ULCERATION [None]
  - MUCOSAL INFLAMMATION [None]
  - RASH [None]
